FAERS Safety Report 5843192-X (Version None)
Quarter: 2008Q3

REPORT INFORMATION
  Report Type: 
  Country: None (occurrence: None)
  Receive Date: 20080813
  Receipt Date: 20080801
  Transmission Date: 20090109
  Serious: Yes (Hospitalization)
  Sender: FDA-Public Use
  Company Number: PHHO2008US08910

PATIENT
  Sex: Female
  Weight: 78 kg

DRUGS (5)
  1. METOPROLOL [Suspect]
     Indication: HYPERTENSION
     Dosage: 50 MG, DAILY
     Route: 048
     Dates: start: 20000101, end: 20080701
  2. EXELON [Suspect]
     Indication: DEMENTIA ALZHEIMER'S TYPE
     Dosage: NO TREATMENT
  3. BLINDED NO TREATMENT RECEIVED NOMED [Suspect]
     Indication: DEMENTIA ALZHEIMER'S TYPE
     Dosage: NO TREATMENT
  4. EXELON [Suspect]
     Indication: DEMENTIA ALZHEIMER'S TYPE
     Dosage: 10 CM/18 MG PATCH
     Route: 062
     Dates: start: 20080520, end: 20080701
  5. ISOSORBIDE [Suspect]
     Indication: HYPERTENSION
     Dosage: 30 MG, DAILY
     Route: 048
     Dates: start: 20000101, end: 20080701

REACTIONS (5)
  - BALANCE DISORDER [None]
  - BLOOD PRESSURE DECREASED [None]
  - FALL [None]
  - HIP FRACTURE [None]
  - HIP SURGERY [None]
